FAERS Safety Report 10427477 (Version 1)
Quarter: 2014Q3

REPORT INFORMATION
  Report Type: Spontaneous
  Country: US (occurrence: US)
  Receive Date: 20140903
  Receipt Date: 20140903
  Transmission Date: 20150326
  Serious: Yes (Hospitalization)
  Sender: FDA-Public Use
  Company Number: US-ASTRAZENECA-2014SE64305

PATIENT
  Age: 69 Year
  Sex: Female
  Weight: 83.9 kg

DRUGS (12)
  1. ESTERASE [Concomitant]
  2. PREMARIN [Concomitant]
     Active Substance: ESTROGENS, CONJUGATED
  3. SIMVASTATIN. [Concomitant]
     Active Substance: SIMVASTATIN
     Indication: BLOOD CHOLESTEROL ABNORMAL
     Route: 048
  4. NEXIUM [Suspect]
     Active Substance: ESOMEPRAZOLE MAGNESIUM
     Indication: GASTROOESOPHAGEAL REFLUX DISEASE
     Route: 048
     Dates: start: 20140729
  5. LANTUS PEN [Concomitant]
     Indication: DIABETES MELLITUS
     Dosage: 30 UNITS IN MORNING
     Route: 058
  6. ASPIRIN. [Concomitant]
     Active Substance: ASPIRIN
     Indication: STENT PLACEMENT
     Route: 048
  7. CHROMIUM PICOLATE [Concomitant]
     Indication: BLOOD GLUCOSE INCREASED
     Dosage: 400 MCG DAILY
     Route: 048
  8. GLIPIZIDE ER [Concomitant]
     Active Substance: GLIPIZIDE
     Indication: DIABETES MELLITUS
     Route: 048
  9. ATENOLOL. [Suspect]
     Active Substance: ATENOLOL
     Indication: BLOOD PRESSURE ABNORMAL
     Route: 048
  10. BRILINTA [Suspect]
     Active Substance: TICAGRELOR
     Indication: CORONARY ARTERIAL STENT INSERTION
     Route: 048
     Dates: start: 20140801
  11. MYCARDIS HCT [Concomitant]
     Indication: BLOOD PRESSURE ABNORMAL
     Dosage: 40-12.5 MG DAILY
     Route: 048
  12. JANUVIA [Concomitant]
     Active Substance: SITAGLIPTIN PHOSPHATE
     Indication: DIABETES MELLITUS
     Route: 048

REACTIONS (9)
  - Pain in extremity [Not Recovered/Not Resolved]
  - Peripheral swelling [Unknown]
  - Pain [Unknown]
  - Myocardial infarction [Recovered/Resolved]
  - Chest pain [Unknown]
  - Dyspnoea exertional [Not Recovered/Not Resolved]
  - Gait disturbance [Not Recovered/Not Resolved]
  - Feeling hot [Unknown]
  - Contusion [Unknown]

NARRATIVE: CASE EVENT DATE: 20140727
